FAERS Safety Report 7559975-4 (Version None)
Quarter: 2011Q2

REPORT INFORMATION
  Report Type: 
  Country: None (occurrence: None)
  Receive Date: 20110621
  Receipt Date: 20110608
  Transmission Date: 20111010
  Serious: Yes (Hospitalization)
  Sender: FDA-Public Use
  Company Number: PHFR2011GB00688

PATIENT
  Sex: Female

DRUGS (1)
  1. CLOZAPINE [Suspect]
     Indication: SCHIZOPHRENIA
     Route: 048
     Dates: start: 20101210

REACTIONS (4)
  - HELMINTHIC INFECTION [None]
  - VOMITING [None]
  - CONFUSIONAL STATE [None]
  - EOSINOPHIL COUNT INCREASED [None]
